FAERS Safety Report 8311098-2 (Version None)
Quarter: 2012Q2

REPORT INFORMATION
  Report Type: 
  Country: None (occurrence: None)
  Receive Date: 20120425
  Receipt Date: 20120416
  Transmission Date: 20120825
  Serious: Yes (Hospitalization)
  Sender: FDA-Public Use
  Company Number: JP-FRI-1000029981

PATIENT
  Age: 84 Year
  Sex: Male

DRUGS (8)
  1. MEMANTINE HCL [Suspect]
     Indication: DEMENTIA ALZHEIMER'S TYPE
     Dosage: 5 MG
     Route: 048
     Dates: start: 20110713
  2. SEVEN EP [Concomitant]
  3. MEMANTINE HCL [Suspect]
     Dosage: 10 MG
     Route: 048
  4. MEMANTINE HCL [Suspect]
     Dosage: 20 MG
     Route: 048
     Dates: end: 20120309
  5. LOPERAMIDE HCL [Concomitant]
  6. MEMANTINE HCL [Suspect]
     Dosage: 15 MG
     Route: 048
  7. ARICEPT [Suspect]
     Indication: DEMENTIA ALZHEIMER'S TYPE
     Dosage: 5 MG
     Route: 048
     Dates: start: 20110914, end: 20120309
  8. MIYA BM [Concomitant]

REACTIONS (3)
  - HYPOKALAEMIA [None]
  - ENTEROCOLITIS [None]
  - DIARRHOEA [None]
